FAERS Safety Report 9741549 (Version 1)
Quarter: 2013Q4

REPORT INFORMATION
  Report Type: Report from Study
  Country: CL (occurrence: CL)
  Receive Date: 20131210
  Receipt Date: 20131210
  Transmission Date: 20140711
  Serious: Yes (Other)
  Sender: FDA-Public Use
  Company Number: CL-ROCHE-1316666

PATIENT
  Age: 59 Year
  Sex: Female
  Weight: 93 kg

DRUGS (2)
  1. XELODA [Suspect]
     Indication: BREAST CANCER
     Dosage: ON 08/NOV/2013, THE LAST DOSE WAS ADMINISTERED
     Route: 048
     Dates: start: 20131001, end: 20131205
  2. LAPATINIB [Suspect]
     Indication: BREAST CANCER
     Route: 048
     Dates: start: 20130911, end: 20131205

REACTIONS (1)
  - Metastases to liver [Not Recovered/Not Resolved]
